FAERS Safety Report 7948869-8 (Version None)
Quarter: 2011Q4

REPORT INFORMATION
  Report Type: 
  Country: None (occurrence: None)
  Receive Date: 20111130
  Receipt Date: 20111118
  Transmission Date: 20120403
  Serious: Yes (Death, Life-Threatening, Hospitalization)
  Sender: FDA-Public Use
  Company Number: TR-PFIZER INC-2006104206

PATIENT
  Age: 60 Year
  Sex: Male
  Weight: 78 kg

DRUGS (4)
  1. SUNITINIB MALATE [Suspect]
     Indication: METASTATIC RENAL CELL CARCINOMA
     Dosage: 50 MG, 1X/DAY
     Route: 048
     Dates: start: 20060512, end: 20060824
  2. TRAMADOL HCL [Concomitant]
     Route: 048
  3. FOSINOPRIL SODIUM [Concomitant]
     Route: 048
  4. CODEINE SULFATE [Concomitant]
     Route: 048

REACTIONS (2)
  - NECROTISING FASCIITIS [None]
  - PNEUMONIA [None]
